FAERS Safety Report 4262300-8 (Version None)
Quarter: 2004Q1

REPORT INFORMATION
  Report Type: 
  Country: None (occurrence: None)
  Receive Date: 20040102
  Receipt Date: 20031208
  Transmission Date: 20041129
  Serious: Yes (Hospitalization)
  Sender: FDA-Public Use
  Company Number: PHBS2003JP13887

PATIENT
  Sex: Male

DRUGS (6)
  1. SYMMETREL [Suspect]
     Indication: PARKINSON'S DISEASE
     Dosage: 50 MG/DAY
     Route: 048
  2. PARLODEL [Suspect]
     Indication: PARKINSON'S DISEASE
     Dosage: 7.5 MG/DAY
     Route: 048
  3. CABASER [Concomitant]
     Indication: PARKINSON'S DISEASE
     Route: 048
  4. DOPS [Concomitant]
     Indication: PARKINSON'S DISEASE
     Route: 048
  5. MENESIT [Concomitant]
     Indication: PARKINSON'S DISEASE
     Route: 048
  6. ARTANE [Concomitant]
     Indication: PARKINSON'S DISEASE
     Route: 048

REACTIONS (2)
  - PNEUMONIA [None]
  - RESPIRATORY FAILURE [None]
